FAERS Safety Report 8559188-3 (Version None)
Quarter: 2012Q3

REPORT INFORMATION
  Report Type: 
  Country: None (occurrence: None)
  Receive Date: 20120802
  Receipt Date: 20120723
  Transmission Date: 20120928
  Serious: Yes (Other)
  Sender: FDA-Public Use
  Company Number: US-009507513-1207USA010795

PATIENT

DRUGS (7)
  1. PREMARIN [Suspect]
     Dosage: 0.6 MG, QD
     Route: 048
  2. LIPITOR [Suspect]
     Dosage: 10 MG, QD
     Route: 048
  3. ZOCOR [Suspect]
     Dosage: 20 MG, QD
     Route: 048
  4. DETROL [Suspect]
  5. HYDROCHLOROTHIAZIDE [Concomitant]
  6. DETROL LA [Suspect]
     Route: 048
  7. ATENOLOL [Concomitant]

REACTIONS (3)
  - BLADDER DISORDER [None]
  - CONDITION AGGRAVATED [None]
  - DRUG INEFFECTIVE [None]
